FAERS Safety Report 15727980 (Version 2)
Quarter: 2022Q3

REPORT INFORMATION
  Report Type: Spontaneous
  Country: US (occurrence: US)
  Receive Date: 20181217
  Receipt Date: 20220719
  Transmission Date: 20221027
  Serious: Yes (Disabling)
  Sender: FDA-Public Use
  Company Number: US-TEVA-2018-US-988010

PATIENT
  Sex: Female

DRUGS (5)
  1. DOCETAXEL [Suspect]
     Active Substance: DOCETAXEL
     Indication: Product used for unknown indication
     Dosage: DOSE: UNKNOWN, NUMBER OF CYCLE -06,  EVERY THREE WEEKS
     Route: 065
     Dates: start: 20140729, end: 20141113
  2. TAXOTERE [Suspect]
     Active Substance: DOCETAXEL
     Indication: Product used for unknown indication
     Dosage: DOSE: UNKNOWN, NUMBER OF CYCLE -06,  EVERY THREE WEEKS
     Route: 065
     Dates: start: 20140729, end: 20141113
  3. CARBOPLATIN [Concomitant]
     Active Substance: CARBOPLATIN
     Indication: Product used for unknown indication
     Dosage: DOSE: UNKNOWN, NUMBER OF CYCLE -06,  EVERY THREE WEEKS
     Route: 065
     Dates: start: 20140729, end: 20141113
  4. HERCEPTIN [Concomitant]
     Active Substance: TRASTUZUMAB
     Indication: Product used for unknown indication
     Dosage: DOSE: UNKNOWN, NUMBER OF CYCLE -06,  EVERY THREE WEEKS
     Route: 065
     Dates: start: 20140729, end: 20141113
  5. PERJETA [Concomitant]
     Active Substance: PERTUZUMAB
     Indication: Product used for unknown indication
     Dosage: DOSE: UNKNOWN, NUMBER OF CYCLE -06,  EVERY THREE WEEKS
     Route: 065
     Dates: start: 20140729, end: 20141113

REACTIONS (5)
  - Alopecia totalis [Unknown]
  - Alopecia areata [Unknown]
  - Madarosis [Unknown]
  - Hair texture abnormal [Unknown]
  - Hair colour changes [Unknown]
